FAERS Safety Report 9190728 (Version 1)
Quarter: 2013Q1

REPORT INFORMATION
  Report Type: Report from Study
  Country: DE (occurrence: DE)
  Receive Date: 20130326
  Receipt Date: 20130326
  Transmission Date: 20140127
  Serious: Yes (Death, Hospitalization)
  Sender: FDA-Public Use
  Company Number: DE-ROCHE-1177632

PATIENT
  Age: 64 Year
  Sex: Male
  Weight: 78 kg

DRUGS (3)
  1. BEVACIZUMAB [Suspect]
     Indication: COLORECTAL CANCER METASTATIC
     Route: 042
     Dates: start: 20121217
  2. CAPECITABINE [Suspect]
     Indication: COLORECTAL CANCER METASTATIC
     Dosage: LAST DOSE PRIOR TO SAE WAS ADMINISTERED ON 30/DEC/2012
     Route: 048
     Dates: start: 20121217
  3. IRINOTECAN [Suspect]
     Indication: COLORECTAL CANCER METASTATIC
     Route: 042
     Dates: start: 20121217

REACTIONS (3)
  - General physical health deterioration [Recovered/Resolved]
  - Ileus [Unknown]
  - Neoplasm progression [Fatal]
